FAERS Safety Report 4323731-0 (Version None)
Quarter: 2004Q1

REPORT INFORMATION
  Report Type: 
  Country: None (occurrence: None)
  Receive Date: 20040323
  Receipt Date: 20040312
  Transmission Date: 20041129
  Serious: Yes (Other)
  Sender: FDA-Public Use
  Company Number: 2004-DE-01225GD

PATIENT
  Age: 18 Month

DRUGS (2)
  1. CYCLOPHOSPHAMIDE [Suspect]
     Indication: BONE MARROW TRANSPLANT
     Dosage: 200 MG/KG I.V. INFUSION INDIVIDED DOSES OVER 4 DAYS (NR), IV
     Route: 042
  2. THIOTEPA [Suspect]
     Indication: BONE MARROW TRANSPLANT
     Dosage: 300 MG/KG

REACTIONS (1)
  - VENOOCCLUSIVE LIVER DISEASE [None]
